FAERS Safety Report 17096544 (Version 1)
Quarter: 2019Q4

REPORT INFORMATION
  Report Type: Spontaneous
  Country: US (occurrence: US)
  Receive Date: 20191202
  Receipt Date: 20191202
  Transmission Date: 20200122
  Serious: No
  Sender: FDA-Public Use
  Company Number: US-AUROBINDO-AUR-APL-2019-018592

PATIENT

DRUGS (7)
  1. FLUCONAZOLE TABLETS 150 MG [Suspect]
     Active Substance: FLUCONAZOLE
     Indication: FUNGAL INFECTION
     Dosage: UNK
     Dates: start: 20190320, end: 20190320
  2. RAMIPRIL. [Concomitant]
     Active Substance: RAMIPRIL
     Indication: PRODUCT USED FOR UNKNOWN INDICATION
     Dosage: UNK
     Route: 065
  3. AMLODIPINE [Concomitant]
     Active Substance: AMLODIPINE BESYLATE
     Indication: PRODUCT USED FOR UNKNOWN INDICATION
     Dosage: UNK
     Route: 065
  4. SYNTHROID [Concomitant]
     Active Substance: LEVOTHYROXINE SODIUM
     Indication: PRODUCT USED FOR UNKNOWN INDICATION
     Dosage: UNK
     Route: 065
  5. LIOTHYRONINE [Concomitant]
     Active Substance: LIOTHYRONINE
     Indication: PRODUCT USED FOR UNKNOWN INDICATION
     Dosage: UNK
     Route: 065
  6. PANTOPRAZOLE [Concomitant]
     Active Substance: PANTOPRAZOLE
     Indication: PRODUCT USED FOR UNKNOWN INDICATION
     Dosage: UNK
     Route: 065
  7. FLUCONAZOLE TABLETS 150 MG [Suspect]
     Active Substance: FLUCONAZOLE
     Dosage: 150 MILLIGRAM, DAILY
     Route: 048
     Dates: start: 20190326, end: 20190327

REACTIONS (8)
  - Skin warm [Recovering/Resolving]
  - Feeling abnormal [Unknown]
  - Urticaria [Unknown]
  - Erythema [Recovering/Resolving]
  - Swelling face [Recovering/Resolving]
  - Oral mucosal blistering [Unknown]
  - Drug hypersensitivity [Recovering/Resolving]
  - Skin exfoliation [Unknown]

NARRATIVE: CASE EVENT DATE: 20190327
